FAERS Safety Report 6886124 (Version 8)
Quarter: 2012Q4

REPORT INFORMATION
  Report Type: 
  Country: US (occurrence: US)
  Receive Date: 20090119
  Receipt Date: 20120910
  Transmission Date: 20130627
  Serious: Yes (Hospitalization, Other)
  Sender: FDA-Public Use
  Company Number: US-ROCHE-552264

PATIENT
  Age: 35 None
  Sex: Male
  Weight: 79.4 kg

DRUGS (1)
  1. ACCUTANE [Suspect]
     Indication: ACNE CYSTIC
     Route: 065
     Dates: start: 19930503, end: 19930920

REACTIONS (9)
  - Colitis ulcerative [Recovering/Resolving]
  - Colitis [Unknown]
  - Depression [Not Recovered/Not Resolved]
  - Social phobia [Not Recovered/Not Resolved]
  - Inflammatory bowel disease [Unknown]
  - Crohn^s disease [Unknown]
  - Peritonitis [Unknown]
  - Intestinal perforation [Recovering/Resolving]
  - Cataract [Recovered/Resolved]
